FAERS Safety Report 5630839-6 (Version None)
Quarter: 2008Q1

REPORT INFORMATION
  Report Type: 
  Country: None (occurrence: None)
  Receive Date: 20080219
  Receipt Date: 20080215
  Transmission Date: 20080703
  Serious: Yes (Death)
  Sender: FDA-Public Use
  Company Number: IT-ASTRAZENECA-2008SE00871

PATIENT
  Age: 24995 Day
  Sex: Female

DRUGS (4)
  1. DIPRIVAN [Suspect]
     Indication: INDUCTION OF ANAESTHESIA
     Route: 042
     Dates: start: 20080209, end: 20080209
  2. MIDARINE [Suspect]
     Indication: INDUCTION OF ANAESTHESIA
     Route: 042
     Dates: start: 20080209, end: 20080209
  3. TRACRIUM [Suspect]
     Indication: INDUCTION OF ANAESTHESIA
     Route: 042
     Dates: start: 20080209, end: 20080209
  4. FENTANEST [Concomitant]
     Indication: ANALGESIA
     Route: 042
     Dates: start: 20080209, end: 20080209

REACTIONS (3)
  - HYPOTENSION [None]
  - OEDEMA [None]
  - SHOCK [None]
